FAERS Safety Report 6112328-8 (Version None)
Quarter: 2009Q1

REPORT INFORMATION
  Report Type: 
  Country: None (occurrence: None)
  Receive Date: 20090311
  Receipt Date: 20090311
  Transmission Date: 20090719
  Serious: Yes (Life-Threatening, Other)
  Sender: FDA-Public Use
  Company Number: None

PATIENT
  Sex: Female
  Weight: 90.7194 kg

DRUGS (1)
  1. PLAVIX [Suspect]
     Indication: CEREBROVASCULAR ACCIDENT PROPHYLAXIS
     Dosage: 75 MG 1 TABLET BY MOUTH DAILY 11/13/08 TO JUST BEFORE THANKSGIVING
     Route: 048
     Dates: start: 20081113, end: 20081101

REACTIONS (1)
  - EPISTAXIS [None]
